FAERS Safety Report 4347107-5 (Version None)
Quarter: 2004Q2

REPORT INFORMATION
  Report Type: 
  Country: None (occurrence: None)
  Receive Date: 20040422
  Receipt Date: 20040408
  Transmission Date: 20050107
  Serious: Yes (Other)
  Sender: FDA-Public Use
  Company Number: USA040464114

PATIENT
  Age: 79 Year
  Sex: Female
  Weight: 68 kg

DRUGS (4)
  1. EVISTA [Suspect]
  2. FORTEO [Suspect]
     Indication: OSTEOPOROSIS
     Dates: start: 20031219, end: 20040214
  3. FOSAMAX [Concomitant]
  4. ACTONEL [Concomitant]

REACTIONS (6)
  - BREAST ENGORGEMENT [None]
  - DYSPNOEA [None]
  - HYPERSENSITIVITY [None]
  - PELVIC FRACTURE [None]
  - SPINAL FRACTURE [None]
  - SWELLING [None]
